FAERS Safety Report 14384048 (Version 1)
Quarter: 2018Q1

REPORT INFORMATION
  Report Type: Spontaneous
  Country: US (occurrence: US)
  Receive Date: 20180115
  Receipt Date: 20180115
  Transmission Date: 20180509
  Serious: No
  Sender: FDA-Public Use
  Company Number: US-PFIZER INC-2018015465

PATIENT
  Age: 13 Year
  Sex: Male
  Weight: 63 kg

DRUGS (3)
  1. ALBUTEROL. [Concomitant]
     Active Substance: ALBUTEROL
     Indication: ASTHMA
     Dosage: UNK
  2. GENOTROPIN [Suspect]
     Active Substance: SOMATROPIN
     Indication: GROWTH RETARDATION
     Dosage: 12 MG, UNK
     Dates: start: 20171107, end: 20171215
  3. GENOTROPIN [Suspect]
     Active Substance: SOMATROPIN
     Indication: OVERWEIGHT

REACTIONS (2)
  - Insomnia [Unknown]
  - Malaise [Unknown]

NARRATIVE: CASE EVENT DATE: 201711
